FAERS Safety Report 10622983 (Version 2)
Quarter: 2014Q4

REPORT INFORMATION
  Report Type: Spontaneous
  Country: IT (occurrence: IT)
  Receive Date: 20141203
  Receipt Date: 20141203
  Transmission Date: 20150529
  Serious: Yes (Hospitalization)
  Sender: FDA-Public Use
  Company Number: IT-BAYER-2014-175391

PATIENT
  Age: 99 Year
  Sex: Female

DRUGS (2)
  1. ACEDIUR [Concomitant]
     Dosage: 1 DF, QD
     Dates: start: 20120101, end: 20141109
  2. CARDIOASPIRIN [Suspect]
     Active Substance: ASPIRIN
     Dosage: 1 DF, QD
     Dates: start: 20130731, end: 20141109

REACTIONS (2)
  - Epilepsy [Not Recovered/Not Resolved]
  - Subdural haematoma [Not Recovered/Not Resolved]

NARRATIVE: CASE EVENT DATE: 20141109
